FAERS Safety Report 8005590-8 (Version None)
Quarter: 2011Q4

REPORT INFORMATION
  Report Type: 
  Country: None (occurrence: None)
  Receive Date: 20111223
  Receipt Date: 20111219
  Transmission Date: 20120403
  Serious: Yes (Hospitalization, Other)
  Sender: FDA-Public Use
  Company Number: US-PFIZER INC-2011307988

PATIENT
  Sex: Female
  Weight: 40.8 kg

DRUGS (3)
  1. METOPROLOL [Concomitant]
     Indication: ATRIAL FIBRILLATION
     Dosage: UNK
  2. WARFARIN SODIUM [Concomitant]
     Dosage: UNK
  3. SUTENT [Suspect]
     Indication: RENAL CANCER STAGE IV
     Dosage: UNK
     Route: 048
     Dates: start: 20111101, end: 20111201

REACTIONS (3)
  - CEREBROVASCULAR ACCIDENT [None]
  - BLOOD DISORDER [None]
  - DYSPNOEA [None]
